FAERS Safety Report 8169899 (Version 2)
Quarter: 2012Q4

REPORT INFORMATION
  Report Type: 
  Country: JP (occurrence: None)
  Receive Date: 20110923
  Receipt Date: 20120821
  Transmission Date: 20130627
  Serious: Yes (Other)
  Sender: FDA-Public Use
  Company Number: US-2011-10673

PATIENT
  Age: 25 Year
  Sex: Male

DRUGS (3)
  1. BUSULFEX [Suspect]
     Indication: STEM CELL TRANSPLANT
     Dosage: 198 MG MILLIGRAM(S), DAILY DOSE, INTRAVENOUS, 60 MG MILLIGRAM(S), G6HR, ORAL
     Route: 042
     Dates: start: 20100727, end: 20100730
  2. BUSULFEX [Suspect]
     Indication: STEM CELL TRANSPLANT
     Route: 048
     Dates: start: 20100728, end: 20100730
  3. PHENYTOIN [Concomitant]

REACTIONS (2)
  - ACUTE PSYCHOSIS [None]
  - FEBRILE CONVULSION [None]
